FAERS Safety Report 17582363 (Version 4)
Quarter: 2020Q2

REPORT INFORMATION
  Report Type: Report from Study
  Country: IL (occurrence: IL)
  Receive Date: 20200325
  Receipt Date: 20200430
  Transmission Date: 20200713
  Serious: Yes (Hospitalization)
  Sender: FDA-Public Use
  Company Number: IL-PORTOLA PHARMACEUTICALS, INC.-2020IL000050

PATIENT
  Age: 76 Year
  Sex: Male

DRUGS (10)
  1. ANDEXXA [Suspect]
     Active Substance: ANDEXANET ALFA
     Indication: PROCOAGULANT THERAPY
     Dosage: 400 MG, SINGLE
     Route: 040
     Dates: start: 20200314, end: 20200314
  2. ANDEXXA [Suspect]
     Active Substance: ANDEXANET ALFA
     Dosage: 480 MG, SINGLE
     Route: 041
     Dates: start: 20200314, end: 20200314
  3. ENOXAPARIN [Concomitant]
     Active Substance: ENOXAPARIN
     Dosage: 40 MG, BID
     Route: 058
     Dates: start: 20200321
  4. PANTOPRAZOLE [Concomitant]
     Active Substance: PANTOPRAZOLE
     Indication: DYSPEPSIA
     Dosage: 80 MG, SINGLE
     Route: 042
     Dates: start: 20200314, end: 20200314
  5. GLUCOMIN [Concomitant]
     Active Substance: METFORMIN HYDROCHLORIDE
     Indication: PRODUCT USED FOR UNKNOWN INDICATION
     Dosage: 850 MG, QD
     Route: 048
  6. LOSEC [Concomitant]
     Active Substance: OMEPRAZOLE
     Indication: PRODUCT USED FOR UNKNOWN INDICATION
     Dosage: 20 MG, QD
     Route: 048
  7. ENOXAPARIN [Concomitant]
     Active Substance: ENOXAPARIN
     Indication: ANTICOAGULANT THERAPY
     Dosage: 40 MG, QD
     Route: 058
     Dates: start: 20200318, end: 20200321
  8. ROSUVASTATIN. [Concomitant]
     Active Substance: ROSUVASTATIN
     Indication: PRODUCT USED FOR UNKNOWN INDICATION
     Dosage: 20 MG, QD
     Route: 048
  9. APIXABAN [Concomitant]
     Active Substance: APIXABAN
     Indication: PRODUCT USED FOR UNKNOWN INDICATION
     Dosage: 5 MG, BID
     Dates: start: 20161111, end: 20200313
  10. RAMIPRIL. [Concomitant]
     Active Substance: RAMIPRIL
     Indication: HYPERTENSION
     Dosage: 2.5 MG, QD
     Route: 048
     Dates: start: 20200319

REACTIONS (1)
  - Ischaemic enteritis [Recovered/Resolved]

NARRATIVE: CASE EVENT DATE: 20200320
